FAERS Safety Report 4294103-2 (Version None)
Quarter: 2004Q1

REPORT INFORMATION
  Report Type: 
  Country: None (occurrence: None)
  Receive Date: 20040212
  Receipt Date: 20040212
  Transmission Date: 20041129
  Serious: Yes (Other)
  Sender: FDA-Public Use
  Company Number: None

PATIENT
  Age: 60 Year
  Sex: Female
  Weight: 72.5755 kg

DRUGS (1)
  1. MAXIPIME [Suspect]
     Indication: ACUTE SINUSITIS
     Dosage: 1 GM IV Q 12
     Route: 042
     Dates: start: 20040130

REACTIONS (1)
  - PRURITUS [None]
